FAERS Safety Report 8377572-8 (Version None)
Quarter: 2012Q2

REPORT INFORMATION
  Report Type: 
  Country: None (occurrence: None)
  Receive Date: 20120522
  Receipt Date: 20120517
  Transmission Date: 20120825
  Serious: Yes (Other)
  Sender: FDA-Public Use
  Company Number: VE-PFIZER INC-2011096887

PATIENT
  Age: 64 Year
  Sex: Female

DRUGS (2)
  1. LIPITOR [Suspect]
     Indication: HYPERCHOLESTEROLAEMIA
     Dosage: 10 MG, 1X/DAY
     Route: 048
     Dates: start: 20090101
  2. CALCIUM [Concomitant]
     Indication: OSTEOPOROSIS
     Dosage: 500 MG, 1X/DAY
     Route: 048

REACTIONS (1)
  - AMNESIA [None]
